FAERS Safety Report 23324228 (Version 1)
Quarter: 2023Q4

REPORT INFORMATION
  Report Type: Spontaneous
  Country: US (occurrence: US)
  Receive Date: 20231221
  Receipt Date: 20231221
  Transmission Date: 20240110
  Serious: No
  Sender: FDA-Public Use
  Company Number: US-drreddys-SPO/USA/23/0182964

PATIENT
  Age: 80 Year
  Sex: Male

DRUGS (3)
  1. CLONIDINE [Suspect]
     Active Substance: CLONIDINE
     Indication: Hypertension
     Dosage: 0.1 MG/ DAY
     Route: 062
  2. CLONIDINE [Suspect]
     Active Substance: CLONIDINE
     Dosage: 0.2 MG/DAY
     Route: 062
     Dates: start: 20231030
  3. CLONIDINE [Suspect]
     Active Substance: CLONIDINE

REACTIONS (2)
  - Drug ineffective [Unknown]
  - Product quality issue [Unknown]
